FAERS Safety Report 13261847 (Version 1)
Quarter: 2017Q1

REPORT INFORMATION
  Report Type: Not Available
  Country: US (occurrence: US)
  Receive Date: 20170222
  Receipt Date: 20170222
  Transmission Date: 20170428
  Serious: No
  Sender: FDA-Public Use
  Company Number: US-HISAMITSU-2016-US-003840

PATIENT
  Age: 79 Year
  Sex: Female
  Weight: 72.58 kg

DRUGS (3)
  1. SALONPAS PAIN RELIEF [Suspect]
     Active Substance: MENTHOL\METHYL SALICYLATE
     Dosage: 1/DAY
     Route: 061
     Dates: start: 20160604, end: 20160605
  2. LISINOPRIL. [Concomitant]
     Active Substance: LISINOPRIL
  3. SIMVISTATIN [Concomitant]
     Active Substance: SIMVASTATIN

REACTIONS (1)
  - Drug ineffective [Not Recovered/Not Resolved]

NARRATIVE: CASE EVENT DATE: 20160604
